FAERS Safety Report 18912691 (Version 1)
Quarter: 2021Q1

REPORT INFORMATION
  Report Type: Spontaneous
  Country: NL (occurrence: NL)
  Receive Date: 20210219
  Receipt Date: 20210219
  Transmission Date: 20210420
  Serious: Yes (Other)
  Sender: FDA-Public Use
  Company Number: NL-HIKMA PHARMACEUTICALS USA INC.-NL-H14001-21-53605

PATIENT
  Age: 29 Year
  Sex: Male
  Weight: 82.1 kg

DRUGS (9)
  1. PARACETAMOL TABLETS [Concomitant]
     Indication: PRODUCT USED FOR UNKNOWN INDICATION
     Dosage: TABLET, 1000 MG (MILLIGRAM)
     Route: 067
  2. AMIODARON HYDROCHLORIDE [Suspect]
     Active Substance: AMIODARONE HYDROCHLORIDE
     Indication: ATRIAL FIBRILLATION
     Dosage: 1X PER DAG 1 STUK
     Route: 065
     Dates: start: 20180530, end: 20201222
  3. PANTOPRAZOL TABLET [Concomitant]
     Indication: PRODUCT USED FOR UNKNOWN INDICATION
     Dosage: MAAGSAPRESISTENTE TABLET, 40 MG (MILLIGRAM)
     Route: 065
  4. SALBUTAMOL SULFAAT [Concomitant]
     Indication: PRODUCT USED FOR UNKNOWN INDICATION
     Dosage: UNKNOWN
     Route: 065
  5. SALMETEROL/FLUTICASON INHALATIEPOEDER [Concomitant]
     Indication: PRODUCT USED FOR UNKNOWN INDICATION
     Dosage: INHALATIEPOEDER, 50/250 ?G/DOSIS (MICROGRAM PER DOSIS)
     Route: 065
  6. ACENOCOUMAROL TABLET [Concomitant]
     Active Substance: ACENOCOUMAROL
     Indication: PRODUCT USED FOR UNKNOWN INDICATION
     Route: 065
  7. PROPRANOLOL [Concomitant]
     Active Substance: PROPRANOLOL HYDROCHLORIDE
     Indication: PRODUCT USED FOR UNKNOWN INDICATION
     Dosage: TABLET 40MG 2DD
     Route: 065
  8. MOMETASON FUROAAT [Concomitant]
     Indication: PRODUCT USED FOR UNKNOWN INDICATION
     Dosage: UNKNOWN
     Route: 065
  9. ONDANSETRON TABLET [Concomitant]
     Active Substance: ONDANSETRON
     Indication: PRODUCT USED FOR UNKNOWN INDICATION
     Dosage: 8MG ORAAL ZN 2DD
     Route: 065

REACTIONS (2)
  - Hyperthyroidism [Unknown]
  - Tension [Unknown]

NARRATIVE: CASE EVENT DATE: 20201214
